FAERS Safety Report 11944765 (Version 1)
Quarter: 2016Q1

REPORT INFORMATION
  Report Type: Spontaneous
  Country: CA (occurrence: CA)
  Receive Date: 20160125
  Receipt Date: 20160125
  Transmission Date: 20160526
  Serious: Yes (Death)
  Sender: FDA-Public Use
  Company Number: CA-TEVA-627168ACC

PATIENT
  Age: 70 Year
  Sex: Female
  Weight: 59 kg

DRUGS (9)
  1. VENTOLIN [Concomitant]
     Active Substance: ALBUTEROL SULFATE
  2. AMLODIPINE [Concomitant]
     Active Substance: AMLODIPINE BESYLATE
  3. SPIRIVA [Concomitant]
     Active Substance: TIOTROPIUM BROMIDE MONOHYDRATE
  4. CIPROFLOXACIN. [Suspect]
     Active Substance: CIPROFLOXACIN
     Indication: PNEUMONIA
     Route: 048
  5. IBUPROFEN. [Suspect]
     Active Substance: IBUPROFEN
     Indication: PRODUCT USED FOR UNKNOWN INDICATION
     Route: 065
  6. STEROIDAL INHALERS [Suspect]
     Active Substance: UNSPECIFIED INGREDIENT
     Route: 065
  7. AVELOX [Concomitant]
     Active Substance: MOXIFLOXACIN HYDROCHLORIDE
  8. IBUPROFEN. [Concomitant]
     Active Substance: IBUPROFEN
  9. QVAR [Concomitant]
     Active Substance: BECLOMETHASONE DIPROPIONATE

REACTIONS (14)
  - Abdominal rigidity [Fatal]
  - Dysphagia [Fatal]
  - Arthralgia [Fatal]
  - Chondropathy [Fatal]
  - Psychotic disorder [Fatal]
  - Condition aggravated [Fatal]
  - Coma [Fatal]
  - Tinnitus [Fatal]
  - Mental disorder [Fatal]
  - Nightmare [Fatal]
  - Vein discolouration [Fatal]
  - Pain [Fatal]
  - Vasodilatation [Fatal]
  - Personality change [Fatal]
